FAERS Safety Report 8838376 (Version 1)
Quarter: 2012Q4

REPORT INFORMATION
  Report Type: 
  Country: NZ (occurrence: NZ)
  Receive Date: 20121012
  Receipt Date: 20121012
  Transmission Date: 20130627
  Serious: Yes (Life-Threatening)
  Sender: FDA-Public Use
  Company Number: PHHY2012NZ088665

PATIENT
  Age: 9 Year
  Sex: Female

DRUGS (2)
  1. CEFTRIAXONE [Suspect]
  2. VANCOMYCIN [Suspect]

REACTIONS (3)
  - Leukocytosis [Not Recovered/Not Resolved]
  - Pruritus [Not Recovered/Not Resolved]
  - Rash morbilliform [Not Recovered/Not Resolved]
